FAERS Safety Report 24199009 (Version 2)
Quarter: 2024Q3

REPORT INFORMATION
  Report Type: Spontaneous
  Country: JP (occurrence: JP)
  Receive Date: 20240812
  Receipt Date: 20240823
  Transmission Date: 20241017
  Serious: Yes (Other)
  Sender: UCB
  Company Number: JP-UCBJ-CD202407191UCBPHAPROD

PATIENT
  Age: 3 Month
  Sex: Male

DRUGS (7)
  1. LEVETIRACETAM [Suspect]
     Active Substance: LEVETIRACETAM
     Indication: Epilepsy
     Dosage: UNK
     Route: 048
  2. LEVETIRACETAM [Suspect]
     Active Substance: LEVETIRACETAM
     Indication: Congenital nephrotic syndrome
  3. LEVETIRACETAM [Suspect]
     Active Substance: LEVETIRACETAM
     Indication: Gene mutation
  4. LEVETIRACETAM [Suspect]
     Active Substance: LEVETIRACETAM
     Indication: Off label use
  5. ALBUMIN HUMAN [Concomitant]
     Active Substance: ALBUMIN HUMAN
     Indication: Congenital nephrotic syndrome
     Dosage: INTERMITTENT ADMINISTRATION
  6. FUROSEMIDE [Concomitant]
     Active Substance: FUROSEMIDE
     Indication: Congenital nephrotic syndrome
     Dosage: UNK
  7. CAPTOPRIL [Concomitant]
     Active Substance: CAPTOPRIL
     Indication: Congenital nephrotic syndrome
     Dosage: UNK

REACTIONS (3)
  - Polymicrogyria [Unknown]
  - Delayed myelination [Unknown]
  - Off label use [Unknown]
